FAERS Safety Report 8462461-0 (Version None)
Quarter: 2012Q2

REPORT INFORMATION
  Report Type: 
  Country: None (occurrence: None)
  Receive Date: 20120625
  Receipt Date: 20120614
  Transmission Date: 20120825
  Serious: Yes (Other)
  Sender: FDA-Public Use
  Company Number: AR-ELI_LILLY_AND_COMPANY-AR201206005565

PATIENT
  Age: 51 Year
  Sex: Male

DRUGS (4)
  1. HUMALOG [Suspect]
     Dosage: UNK UNK, PRN
     Dates: start: 20120530, end: 20120608
  2. HUMALOG [Suspect]
     Dosage: UNK UNK, PRN
     Route: 058
     Dates: start: 20120609, end: 20120613
  3. HUMALOG [Suspect]
     Dosage: 25 U, QD
     Route: 058
     Dates: start: 20120530, end: 20120608
  4. HUMALOG [Suspect]
     Indication: TYPE 1 DIABETES MELLITUS
     Dosage: UNK, UNKNOWN
     Route: 058
     Dates: start: 19920101

REACTIONS (6)
  - DIALYSIS [None]
  - TRANSPLANT EVALUATION [None]
  - DRUG INEFFECTIVE [None]
  - INFECTION [None]
  - HYPERGLYCAEMIA [None]
  - VOMITING [None]
